FAERS Safety Report 6008086-8 (Version None)
Quarter: 2008Q4

REPORT INFORMATION
  Report Type: 
  Country: None (occurrence: None)
  Receive Date: 20081217
  Receipt Date: 20080819
  Transmission Date: 20090506
  Serious: No
  Sender: FDA-Public Use
  Company Number: US-ASTRAZENECA-2008UW16896

PATIENT
  Age: 19235 Day
  Sex: Male

DRUGS (2)
  1. CRESTOR [Suspect]
     Route: 048
     Dates: start: 20080402, end: 20080807
  2. NEXIUM [Suspect]
     Route: 048

REACTIONS (2)
  - MUSCLE SPASMS [None]
  - VARICOSE VEIN [None]
